FAERS Safety Report 6334594-6 (Version None)
Quarter: 2009Q3

REPORT INFORMATION
  Report Type: 
  Country: None (occurrence: None)
  Receive Date: 20090831
  Receipt Date: 20090817
  Transmission Date: 20100115
  Serious: Yes (Other)
  Sender: FDA-Public Use
  Company Number: PHHY2009AU34323

PATIENT
  Sex: Female

DRUGS (1)
  1. TASIGNA [Suspect]
     Indication: CHRONIC MYELOID LEUKAEMIA
     Dosage: 800
     Route: 048

REACTIONS (4)
  - BLOOD COUNT ABNORMAL [None]
  - COLON CANCER [None]
  - HAEMORRHAGE [None]
  - NEOPLASM MALIGNANT [None]
